FAERS Safety Report 6000066-1 (Version None)
Quarter: 2008Q4

REPORT INFORMATION
  Report Type: 
  Country: None (occurrence: None)
  Receive Date: 20081215
  Receipt Date: 20081209
  Transmission Date: 20090506
  Serious: Yes (Other)
  Sender: FDA-Public Use
  Company Number: B0547455A

PATIENT
  Age: 36 Year
  Sex: Male

DRUGS (2)
  1. COMBIVIR [Suspect]
     Indication: HIV INFECTION
     Dosage: 2TAB PER DAY
     Route: 048
     Dates: start: 20070803, end: 20071016
  2. STOCRIN [Concomitant]
     Indication: HIV INFECTION
     Dosage: .6G PER DAY
     Route: 065
     Dates: start: 20070803

REACTIONS (6)
  - ANAEMIA [None]
  - CHEST DISCOMFORT [None]
  - DIZZINESS [None]
  - HEADACHE [None]
  - MALAISE [None]
  - PALLOR [None]
